FAERS Safety Report 7597451-3 (Version None)
Quarter: 2011Q3

REPORT INFORMATION
  Report Type: 
  Country: None (occurrence: None)
  Receive Date: 20110708
  Receipt Date: 20110630
  Transmission Date: 20111222
  Serious: Yes (Hospitalization)
  Sender: FDA-Public Use
  Company Number: US-US-EMD SERONO, INC.-7063332

PATIENT
  Sex: Female

DRUGS (1)
  1. REBIF [Suspect]
     Indication: PRODUCT USED FOR UNKNOWN INDICATION
     Route: 058
     Dates: start: 20110526, end: 20110528

REACTIONS (9)
  - SMALL INTESTINAL RESECTION [None]
  - DIARRHOEA [None]
  - PYREXIA [None]
  - PHARYNGEAL OEDEMA [None]
  - VOMITING [None]
  - URINE ABNORMALITY [None]
  - GINGIVAL SWELLING [None]
  - DYSPNOEA [None]
  - CHILLS [None]
